FAERS Safety Report 7660375-7 (Version None)
Quarter: 2011Q3

REPORT INFORMATION
  Report Type: 
  Country: None (occurrence: None)
  Receive Date: 20110805
  Receipt Date: 20110721
  Transmission Date: 20111222
  Serious: Yes (Other)
  Sender: FDA-Public Use
  Company Number: FR-ARROW GEN-2011-11856

PATIENT
  Age: 59 Year
  Sex: Female

DRUGS (1)
  1. CIPROFLOXACIN HCL [Suspect]
     Indication: URINARY TRACT INFECTION
     Dosage: 1000 MG, DAILY

REACTIONS (2)
  - AUTOIMMUNE HEPATITIS [None]
  - LIVER INJURY [None]
